FAERS Safety Report 14475147 (Version 1)
Quarter: 2018Q1

REPORT INFORMATION
  Report Type: Spontaneous
  Country: US (occurrence: US)
  Receive Date: 20180201
  Receipt Date: 20180201
  Transmission Date: 20180509
  Serious: No
  Sender: FDA-Public Use
  Company Number: US-BIOGEN-2018BI00515731

PATIENT
  Sex: Male

DRUGS (1)
  1. TECFIDERA [Suspect]
     Active Substance: DIMETHYL FUMARATE
     Indication: MULTIPLE SCLEROSIS
     Route: 065
     Dates: end: 201708

REACTIONS (5)
  - Fall [Recovered/Resolved]
  - Laceration [Unknown]
  - Mobility decreased [Unknown]
  - Balance disorder [Unknown]
  - Head injury [Unknown]

NARRATIVE: CASE EVENT DATE: 201706
